FAERS Safety Report 8389741-1 (Version None)
Quarter: 2012Q2

REPORT INFORMATION
  Report Type: 
  Country: None (occurrence: None)
  Receive Date: 20120524
  Receipt Date: 20120524
  Transmission Date: 20120825
  Serious: Yes (Hospitalization)
  Sender: FDA-Public Use
  Company Number: None

PATIENT
  Sex: Female
  Weight: 81.6475 kg

DRUGS (2)
  1. VOLTAREN [Suspect]
     Indication: ARTHRALGIA
     Dosage: TUBE - 1/2 INCH TWICE A  DAY KNEE
     Dates: start: 20120321
  2. VOLTAREN [Suspect]
     Indication: ARTHRITIS
     Dosage: TUBE - 1/2 INCH TWICE A  DAY KNEE
     Dates: start: 20120321

REACTIONS (4)
  - HEART RATE INCREASED [None]
  - BLOOD POTASSIUM DECREASED [None]
  - PRESYNCOPE [None]
  - BLOOD CALCIUM DECREASED [None]
